FAERS Safety Report 5782351-1 (Version None)
Quarter: 2008Q2

REPORT INFORMATION
  Report Type: 
  Country: None (occurrence: None)
  Receive Date: 20080623
  Receipt Date: 20080604
  Transmission Date: 20081010
  Serious: No
  Sender: FDA-Public Use
  Company Number: US-BOEHRINGER INGELHEIM GMBH, GERMANY-2008-BP-08650BP

PATIENT
  Age: 14 Year
  Sex: Male

DRUGS (1)
  1. CATAPRES-TTS-1 [Suspect]
     Indication: TOURETTE'S DISORDER
     Route: 061
     Dates: start: 20080401

REACTIONS (2)
  - ABNORMAL BEHAVIOUR [None]
  - APPLICATION SITE PRURITUS [None]
